FAERS Safety Report 8259112-7 (Version None)
Quarter: 2012Q2

REPORT INFORMATION
  Report Type: 
  Country: None (occurrence: None)
  Receive Date: 20120404
  Receipt Date: 20120320
  Transmission Date: 20120825
  Serious: Yes (Hospitalization)
  Sender: FDA-Public Use
  Company Number: US-ROCHE-1056180

PATIENT
  Sex: Female
  Weight: 60.382 kg

DRUGS (6)
  1. XELODA [Suspect]
     Indication: BREAST CANCER METASTATIC
     Route: 048
     Dates: start: 20120222
  2. XELODA [Suspect]
     Indication: METASTASES TO LIVER
  3. LOVENOX [Concomitant]
     Route: 058
  4. PREVACID [Concomitant]
     Route: 048
     Dates: end: 20120301
  5. CARBOPLATIN [Concomitant]
     Indication: BREAST CANCER METASTATIC
     Route: 042
  6. CARBOPLATIN [Concomitant]
     Indication: METASTASES TO LIVER

REACTIONS (5)
  - PHARYNGEAL ERYTHEMA [None]
  - BIOPSY LIVER [None]
  - INGROWING NAIL [None]
  - HEART RATE INCREASED [None]
  - ERYTHEMA [None]
